FAERS Safety Report 6411742-0 (Version None)
Quarter: 2009Q4

REPORT INFORMATION
  Report Type: 
  Country: None (occurrence: None)
  Receive Date: 20091023
  Receipt Date: 20091016
  Transmission Date: 20100525
  Serious: Yes (Hospitalization)
  Sender: FDA-Public Use
  Company Number: ES-ASTRAZENECA-2009SE20440

PATIENT
  Age: 71 Year
  Sex: Female
  Weight: 68 kg

DRUGS (7)
  1. ROPIVACAINE [Suspect]
     Indication: NERVE BLOCK
     Route: 053
  2. MEPIVACAINE HCL [Suspect]
     Indication: NERVE BLOCK
     Route: 053
  3. MIDAZOLAM HCL [Concomitant]
  4. PROPOFOL [Concomitant]
     Indication: GENERAL ANAESTHESIA
  5. ALFENTANIL [Concomitant]
     Indication: GENERAL ANAESTHESIA
  6. SEVOFLURANE [Concomitant]
     Indication: ANAESTHESIA
  7. NIFEDIPINE [Concomitant]
     Indication: HYPERTENSION

REACTIONS (2)
  - EYELID PTOSIS [None]
  - QUADRIPARESIS [None]
